FAERS Safety Report 9664551 (Version 1)
Quarter: 2013Q4

REPORT INFORMATION
  Report Type: Spontaneous
  Country: US (occurrence: None)
  Receive Date: 20131030
  Receipt Date: 20131030
  Transmission Date: 20140711
  Serious: No
  Sender: FDA-Public Use
  Company Number: None

PATIENT
  Age: 42 Year
  Sex: Male

DRUGS (2)
  1. ESCITALOPRAM 10MG AUROBIUDO PHARMA [Suspect]
     Indication: DEPRESSION
     Route: 048
  2. SERTRALINE [Suspect]
     Indication: ANXIETY
     Dates: start: 20130306, end: 20130325

REACTIONS (4)
  - Agitation [None]
  - Stress [None]
  - Restlessness [None]
  - Product substitution issue [None]
